FAERS Safety Report 5614316-4 (Version None)
Quarter: 2008Q1

REPORT INFORMATION
  Report Type: 
  Country: None (occurrence: None)
  Receive Date: 20080205
  Receipt Date: 20080125
  Transmission Date: 20080703
  Serious: Yes (Death)
  Sender: FDA-Public Use
  Company Number: JP-SANOFI-SYNTHELABO-A01200713398

PATIENT
  Sex: Male
  Weight: 72 kg

DRUGS (9)
  1. GLYCYRRHIZIN_GLYCINE_CYSTEINE [Concomitant]
     Indication: PREMEDICATION
     Dosage: 20 ML
     Route: 041
     Dates: start: 20070612, end: 20070927
  2. DOXIFLURIDINE [Concomitant]
     Indication: COLON CANCER
     Dosage: UNK
     Route: 048
     Dates: start: 20070220, end: 20070220
  3. IRINOTECAN HCL [Suspect]
     Route: 041
     Dates: start: 20071018, end: 20071018
  4. FLUOROURACIL [Suspect]
     Route: 040
     Dates: start: 20070927, end: 20070927
  5. FLUOROURACIL [Suspect]
     Route: 041
     Dates: start: 20070927, end: 20070928
  6. LEUCOVORIN CALCIUM [Suspect]
     Route: 041
     Dates: start: 20070927, end: 20070927
  7. MITOMYCIN [Concomitant]
     Indication: COLON CANCER
     Dosage: UNK
     Route: 041
     Dates: start: 20070220, end: 20070220
  8. HYDROCORTISONE SODIUM SUCCINATE [Concomitant]
     Indication: PREMEDICATION
     Dosage: 100 MG
     Route: 041
     Dates: start: 20070612, end: 20070927
  9. OXALIPLATIN [Suspect]
     Indication: COLON CANCER
     Route: 042
     Dates: start: 20070927, end: 20070927

REACTIONS (2)
  - INTERSTITIAL LUNG DISEASE [None]
  - RESPIRATORY FAILURE [None]
